FAERS Safety Report 24568603 (Version 1)
Quarter: 2024Q4

REPORT INFORMATION
  Report Type: Spontaneous
  Country: CZ (occurrence: CZ)
  Receive Date: 20241031
  Receipt Date: 20241031
  Transmission Date: 20250115
  Serious: Yes (Other)
  Sender: NOVARTIS
  Company Number: CZ-002147023-NVSC2024CZ208549

PATIENT
  Age: 70 Year
  Sex: Female

DRUGS (6)
  1. MAXITROL [Suspect]
     Active Substance: DEXAMETHASONE\NEOMYCIN SULFATE\POLYMYXIN B SULFATE
     Indication: Keratitis
     Dosage: UNK
     Route: 065
     Dates: start: 2019
  2. TOBRADEX [Suspect]
     Active Substance: DEXAMETHASONE\TOBRAMYCIN
     Indication: Keratitis
     Dosage: UNK, QH
     Route: 065
     Dates: start: 2018
  3. TOBRAMYCIN [Suspect]
     Active Substance: TOBRAMYCIN\TOBRAMYCIN SULFATE
     Indication: Keratitis
     Dosage: AT BED TIME
     Route: 065
  4. OFLOXACIN [Suspect]
     Active Substance: OFLOXACIN
     Indication: Keratitis
     Dosage: 5 TIMES
     Route: 065
  5. CIPROFLOXACIN [Suspect]
     Active Substance: CIPROFLOXACIN
     Indication: Keratitis
     Dosage: 500 MG, PER OS BID
     Route: 065
  6. PREDNISOLONE [Concomitant]
     Active Substance: PREDNISOLONE
     Indication: Keratitis
     Dosage: 60 MG, QD
     Route: 065
     Dates: start: 2019, end: 2019

REACTIONS (2)
  - Mycobacterium chelonae infection [Unknown]
  - Condition aggravated [Unknown]
